FAERS Safety Report 20992126 (Version 1)
Quarter: 2022Q2

REPORT INFORMATION
  Report Type: Spontaneous
  Country: US (occurrence: US)
  Receive Date: 20220622
  Receipt Date: 20220622
  Transmission Date: 20220720
  Serious: Yes (Other)
  Sender: FDA-Public Use
  Company Number: US-Accord-247578

PATIENT
  Age: 40 Year
  Sex: Female

DRUGS (1)
  1. KLONOPIN [Suspect]
     Active Substance: CLONAZEPAM
     Indication: Product used for unknown indication
     Dosage: STRENGTH: 5MG

REACTIONS (9)
  - Headache [Unknown]
  - Derealisation [Unknown]
  - Suicidal ideation [Unknown]
  - Insomnia [Unknown]
  - Decreased appetite [Unknown]
  - Depression [Unknown]
  - Mood swings [Unknown]
  - Fatigue [Unknown]
  - Feeling abnormal [Unknown]
